FAERS Safety Report 23027852 (Version 1)
Quarter: 2023Q4

REPORT INFORMATION
  Report Type: Spontaneous
  Country: US (occurrence: US)
  Receive Date: 20231004
  Receipt Date: 20231004
  Transmission Date: 20240109
  Serious: No
  Sender: FDA-Public Use
  Company Number: US-TG THERAPEUTICS INC.-TGT002928

PATIENT
  Age: 24 Year
  Sex: Male

DRUGS (2)
  1. BRIUMVI [Suspect]
     Active Substance: UBLITUXIMAB-XIIY
     Indication: Multiple sclerosis
     Dosage: UNK
     Route: 042
     Dates: start: 2023
  2. BRIUMVI [Suspect]
     Active Substance: UBLITUXIMAB-XIIY
     Dosage: 450 MILLIGRAM
     Route: 042
     Dates: start: 20230809

REACTIONS (7)
  - Infusion related reaction [Unknown]
  - Arthralgia [Unknown]
  - Myalgia [Unknown]
  - Groin pain [Unknown]
  - Myalgia [Unknown]
  - Muscular weakness [Recovering/Resolving]
  - Pain in jaw [Unknown]

NARRATIVE: CASE EVENT DATE: 20230809
